FAERS Safety Report 5020319-3 (Version None)
Quarter: 2006Q2

REPORT INFORMATION
  Report Type: 
  Country: None (occurrence: None)
  Receive Date: 20060601
  Receipt Date: 20060307
  Transmission Date: 20061013
  Serious: Yes (Hospitalization)
  Sender: FDA-Public Use
  Company Number: 02100-JPN-05-0529

PATIENT
  Age: 65 Year
  Sex: Male

DRUGS (4)
  1. ASPIRIN [Suspect]
     Indication: CEREBRAL INFARCTION
     Dosage: 100 MG ORAL
     Route: 048
     Dates: start: 20040927, end: 20051101
  2. AMLODIPINE BESYLATE [Concomitant]
  3. SIMVASTATIN [Concomitant]
  4. ALLOPURINOL [Concomitant]

REACTIONS (1)
  - RENAL FAILURE [None]
